FAERS Safety Report 4497753-3 (Version None)
Quarter: 2004Q4

REPORT INFORMATION
  Report Type: 
  Country: None (occurrence: None)
  Receive Date: 20041104
  Receipt Date: 20041027
  Transmission Date: 20050328
  Serious: Yes (Other)
  Sender: FDA-Public Use
  Company Number: 2004-10-1653

PATIENT
  Age: 53 Year
  Sex: Female

DRUGS (2)
  1. NASONEX [Suspect]
     Indication: POSTNASAL DRIP
     Dosage: 1-2 QD NASAL SPRAY
     Dates: start: 20020101, end: 20040101
  2. PREDNISONE [Suspect]
     Indication: POSTNASAL DRIP
     Dosage: ORAL
     Route: 048
     Dates: end: 20040101

REACTIONS (1)
  - RETINOPATHY [None]
